FAERS Safety Report 8319543-3 (Version None)
Quarter: 2012Q2

REPORT INFORMATION
  Report Type: 
  Country: None (occurrence: None)
  Receive Date: 20120427
  Receipt Date: 20120424
  Transmission Date: 20120825
  Serious: Yes (Life-Threatening)
  Sender: FDA-Public Use
  Company Number: US-BRISTOL-MYERS SQUIBB COMPANY-16545378

PATIENT
  Age: 35 Year
  Sex: Female

DRUGS (6)
  1. SINGULAIR [Concomitant]
  2. ADVAIR DISKUS 100/50 [Concomitant]
  3. COGENTIN [Concomitant]
  4. ABILIFY [Suspect]
     Indication: BIPOLAR DISORDER
     Dosage: 15 MG:FOR 5 WEEKS
  5. PROAIR HFA [Concomitant]
  6. TOPAMAX [Concomitant]

REACTIONS (1)
  - HYPOKALAEMIA [None]
